FAERS Safety Report 8427582-7 (Version None)
Quarter: 2012Q2

REPORT INFORMATION
  Report Type: 
  Country: None (occurrence: None)
  Receive Date: 20120611
  Receipt Date: 20120601
  Transmission Date: 20120825
  Serious: Yes (Hospitalization)
  Sender: FDA-Public Use
  Company Number: GB-B.I. PHARMACEUTICALS,INC./RIDGEFIELD-2012-UK-00745UK

PATIENT
  Age: 28 Year
  Sex: Female

DRUGS (2)
  1. TRUVADA [Concomitant]
     Indication: HIV INFECTION
  2. VIRAMUNE [Suspect]
     Indication: HIV INFECTION

REACTIONS (5)
  - RASH [None]
  - CONSTIPATION [None]
  - HEPATIC ENZYME INCREASED [None]
  - HYPERSENSITIVITY [None]
  - PYREXIA [None]
